FAERS Safety Report 7002525-1 (Version None)
Quarter: 2010Q3

REPORT INFORMATION
  Report Type: 
  Country: None (occurrence: None)
  Receive Date: 20100920
  Receipt Date: 20090805
  Transmission Date: 20110219
  Serious: No
  Sender: FDA-Public Use
  Company Number: US-ASTRAZENECA-2009UW21797

PATIENT
  Age: 30 Year
  Sex: Female
  Weight: 99.8 kg

DRUGS (4)
  1. SEROQUEL [Suspect]
     Indication: BIPOLAR DISORDER
     Route: 048
     Dates: start: 20090802, end: 20090802
  2. SEROQUEL [Suspect]
     Route: 048
     Dates: start: 20090803, end: 20090803
  3. SEROQUEL [Suspect]
     Route: 048
     Dates: start: 20090804, end: 20090804
  4. KLONOPIN [Concomitant]
     Indication: ANXIETY

REACTIONS (3)
  - ALOPECIA [None]
  - DRY MOUTH [None]
  - SEDATION [None]
